FAERS Safety Report 16529018 (Version 5)
Quarter: 2022Q1

REPORT INFORMATION
  Report Type: Report from Study
  Country: US (occurrence: US)
  Receive Date: 20190703
  Receipt Date: 20220106
  Transmission Date: 20220423
  Serious: Yes (Other)
  Sender: FDA-Public Use
  Company Number: US-TAKEDA-2018TUS006539

PATIENT
  Sex: Female

DRUGS (10)
  1. PONATINIB [Suspect]
     Active Substance: PONATINIB
     Indication: Acute lymphocytic leukaemia recurrent
     Dosage: 15 MILLIGRAM, QD
     Route: 048
     Dates: start: 20170128
  2. PONATINIB [Suspect]
     Active Substance: PONATINIB
     Dosage: 30 MILLIGRAM, QD
     Route: 048
  3. PONATINIB [Suspect]
     Active Substance: PONATINIB
     Dosage: 15 MILLIGRAM, QD
     Route: 048
  4. FISH OIL [Concomitant]
     Active Substance: FISH OIL
     Dosage: UNK
     Route: 065
  5. VITAMINS [Concomitant]
     Active Substance: VITAMINS
     Dosage: UNK
     Route: 065
  6. CANNABIS SATIVA SUBSP. INDICA TOP [Concomitant]
     Active Substance: CANNABIS SATIVA SUBSP. INDICA TOP
     Dosage: UNK
     Route: 065
  7. BERBERINE [Concomitant]
     Active Substance: BERBERINE
     Dosage: UNK
     Route: 065
  8. METFORMIN HYDROCHLORIDE [Concomitant]
     Active Substance: METFORMIN HYDROCHLORIDE
     Dosage: UNK
     Route: 065
  9. ASPIRIN [Concomitant]
     Active Substance: ASPIRIN
     Dosage: UNK
     Route: 065
  10. DESMOPRESSIN ACETATE [Concomitant]
     Active Substance: DESMOPRESSIN ACETATE
     Dosage: UNK
     Route: 065

REACTIONS (15)
  - Acute lymphocytic leukaemia recurrent [Unknown]
  - Pancreatitis [Recovered/Resolved]
  - Diabetes mellitus inadequate control [Unknown]
  - Hypogammaglobulinaemia [Unknown]
  - Hypokalaemia [Unknown]
  - Pneumonia [Unknown]
  - Dry skin [Unknown]
  - Sinus disorder [Unknown]
  - Blood cholesterol increased [Unknown]
  - Muscle spasms [Unknown]
  - Transaminases increased [Unknown]
  - Hypertension [Unknown]
  - Palpitations [Unknown]
  - Blood glucose increased [Unknown]
  - Adverse event [Unknown]
